FAERS Safety Report 20177289 (Version 4)
Quarter: 2022Q1

REPORT INFORMATION
  Report Type: Report from Study
  Country: US (occurrence: US)
  Receive Date: 20211213
  Receipt Date: 20220222
  Transmission Date: 20220423
  Serious: No
  Sender: FDA-Public Use
  Company Number: US-NOVARTISTESTPH-NVSC2021US283031

PATIENT
  Sex: Male
  Weight: 117.46 kg

DRUGS (4)
  1. TREPROSTINIL [Suspect]
     Active Substance: TREPROSTINIL
     Indication: Pulmonary arterial hypertension
     Dosage: 82 NG/KG/MIN, CONT
     Route: 042
     Dates: start: 20211110
  2. TREPROSTINIL [Suspect]
     Active Substance: TREPROSTINIL
     Dosage: 84 NG/KG/MIN, CONT
     Route: 042
  3. TREPROSTINIL [Suspect]
     Active Substance: TREPROSTINIL
     Dosage: 87NG/KG/MIN
     Route: 058
  4. SILDENAFIL CITRATE [Concomitant]
     Active Substance: SILDENAFIL CITRATE
     Indication: Product used for unknown indication
     Dosage: UNK
     Route: 065

REACTIONS (4)
  - Bowel movement irregularity [Unknown]
  - Raynaud^s phenomenon [Unknown]
  - Dyspnoea [Unknown]
  - Drug ineffective [Unknown]
